FAERS Safety Report 13182082 (Version 1)
Quarter: 2017Q1

REPORT INFORMATION
  Report Type: Spontaneous
  Country: US (occurrence: US)
  Receive Date: 20170202
  Receipt Date: 20170202
  Transmission Date: 20170428
  Serious: Yes (Other)
  Sender: FDA-Public Use
  Company Number: None

PATIENT
  Age: 66 Year
  Sex: Female
  Weight: 67.5 kg

DRUGS (15)
  1. CAPECITABINE 500 MG TABLET MYLAN [Suspect]
     Active Substance: CAPECITABINE
     Indication: BREAST CANCER STAGE IV
     Dosage: ?          QUANTITY:3 TABLET(S);?
     Route: 048
     Dates: start: 20160425, end: 20160429
  2. XELODA [Concomitant]
     Active Substance: CAPECITABINE
  3. MODIFIED CITRUS PECTIN [Concomitant]
  4. FERMENTED WHEAT GERM [Concomitant]
  5. CALCIUM [Concomitant]
     Active Substance: CALCIUM
  6. FISH OIL [Concomitant]
     Active Substance: FISH OIL
  7. PROBIOTICS [Concomitant]
     Active Substance: PROBIOTICS NOS
  8. VITAMIN D [Concomitant]
     Active Substance: CHOLECALCIFEROL
  9. COROLIUS MUSHROOM [Concomitant]
  10. VITAMIN K [Concomitant]
     Active Substance: PHYTONADIONE
  11. RESVERATROL [Concomitant]
     Active Substance: RESVERATROL
  12. NIACIN. [Concomitant]
     Active Substance: NIACIN
  13. CURCAMIN [Concomitant]
  14. MAGNESIUM [Concomitant]
     Active Substance: MAGNESIUM
  15. COQ10 [Concomitant]
     Active Substance: UBIDECARENONE

REACTIONS (5)
  - Product substitution issue [None]
  - Abdominal pain upper [None]
  - Feeling abnormal [None]
  - Gastrointestinal disorder [None]
  - Product formulation issue [None]

NARRATIVE: CASE EVENT DATE: 20160425
